FAERS Safety Report 24772723 (Version 1)
Quarter: 2024Q4

REPORT INFORMATION
  Report Type: Spontaneous
  Country: MA (occurrence: None)
  Receive Date: 20241225
  Receipt Date: 20241225
  Transmission Date: 20250114
  Serious: Yes (Hospitalization)
  Sender: ENCUBE ETHICALS
  Company Number: MA-Encube-001506

PATIENT
  Age: 64 Year
  Sex: Male

DRUGS (1)
  1. DICLOFENAC SODIUM [Suspect]
     Active Substance: DICLOFENAC SODIUM
     Indication: Traumatic pain
     Dosage: IATROGENIC INJECTION
     Route: 013

REACTIONS (3)
  - Peripheral ischaemia [Recovering/Resolving]
  - Off label use [Unknown]
  - Accidental exposure to product [Unknown]
